FAERS Safety Report 8858809 (Version 1)
Quarter: 2012Q4

REPORT INFORMATION
  Report Type: Spontaneous
  Country: US (occurrence: None)
  Receive Date: 20121022
  Receipt Date: 20121022
  Transmission Date: 20130627
  Serious: Yes (Other)
  Sender: FDA-Public Use
  Company Number: None

PATIENT
  Age: 28 Year
  Sex: Female
  Weight: 77.11 kg

DRUGS (1)
  1. MIRENA IUD [Suspect]
     Indication: BIRTH CONTROL

REACTIONS (22)
  - Road traffic accident [None]
  - Device dislocation [None]
  - Arthralgia [None]
  - Abdominal distension [None]
  - Abdominal pain [None]
  - Device dislocation [None]
  - Weight increased [None]
  - Pain [None]
  - Procedural pain [None]
  - Pregnancy [None]
  - Maternal exposure before pregnancy [None]
  - Foetal death [None]
  - Emotional disorder [None]
  - Uterine pain [None]
  - Vulvovaginal pain [None]
  - Infertility [None]
  - Impaired work ability [None]
  - Nausea [None]
  - Headache [None]
  - Ovarian cyst [None]
  - Depression suicidal [None]
  - Dyspareunia [None]
